FAERS Safety Report 9732952 (Version 1)
Quarter: 2013Q4

REPORT INFORMATION
  Report Type: Spontaneous
  Country: HU (occurrence: HU)
  Receive Date: 20131205
  Receipt Date: 20131205
  Transmission Date: 20140711
  Serious: Yes (Other)
  Sender: FDA-Public Use
  Company Number: HU-PFIZER INC-2013343843

PATIENT
  Sex: Female

DRUGS (1)
  1. MEDROL [Suspect]
     Dosage: STRENGTH 4MG

REACTIONS (3)
  - Renal impairment [Unknown]
  - Abdominal pain upper [Unknown]
  - Back pain [Unknown]
